FAERS Safety Report 24968617 (Version 2)
Quarter: 2025Q1

REPORT INFORMATION
  Report Type: Spontaneous
  Country: US (occurrence: US)
  Receive Date: 20250214
  Receipt Date: 20250225
  Transmission Date: 20250408
  Serious: Yes (Death)
  Sender: ROCHE
  Company Number: US-ROCHE-10000203207

PATIENT
  Age: 66 Year
  Sex: Male
  Weight: 65.1 kg

DRUGS (2)
  1. HEMLIBRA [Suspect]
     Active Substance: EMICIZUMAB-KXWH
     Indication: Factor VIII deficiency
     Dosage: STRENGTH: 105 MG/ 0.7ML
     Route: 058
     Dates: start: 202207
  2. HEMLIBRA [Suspect]
     Active Substance: EMICIZUMAB-KXWH
     Route: 058
     Dates: start: 20240427

REACTIONS (1)
  - Metastatic neoplasm [Fatal]

NARRATIVE: CASE EVENT DATE: 20240512
